FAERS Safety Report 21328427 (Version 3)
Quarter: 2022Q3

REPORT INFORMATION
  Report Type: Report from Study
  Country: DE (occurrence: DE)
  Receive Date: 20220913
  Receipt Date: 20220926
  Transmission Date: 20221027
  Serious: Yes (Hospitalization)
  Sender: FDA-Public Use
  Company Number: DE-002147023-NVSC2022DE006428

PATIENT
  Sex: Female

DRUGS (4)
  1. LETROZOLE [Suspect]
     Active Substance: LETROZOLE
     Indication: Hormone receptor positive HER2 negative breast cancer
     Dosage: 2.5 MG, QD
     Route: 065
     Dates: start: 20190827, end: 20191006
  2. LETROZOLE [Suspect]
     Active Substance: LETROZOLE
     Indication: Breast cancer metastatic
     Dosage: 2.5 MG, QD
     Route: 065
     Dates: start: 20191007
  3. KISQALI [Suspect]
     Active Substance: RIBOCICLIB
     Indication: Hormone receptor positive HER2 negative breast cancer
     Dosage: SCHEME 21 DAYS INTAKE, 7 DAYS PAUSE
     Route: 065
     Dates: start: 20190827, end: 20190909
  4. KISQALI [Suspect]
     Active Substance: RIBOCICLIB
     Indication: Breast cancer metastatic

REACTIONS (4)
  - Chronic obstructive pulmonary disease [Recovered/Resolved]
  - Coronary artery disease [Recovered/Resolved]
  - Peripheral ischaemia [Recovered/Resolved]
  - Bronchitis chronic [Not Recovered/Not Resolved]

NARRATIVE: CASE EVENT DATE: 20210208
